FAERS Safety Report 8022379-4 (Version None)
Quarter: 2011Q4

REPORT INFORMATION
  Report Type: 
  Country: None (occurrence: None)
  Receive Date: 20111229
  Receipt Date: 20111222
  Transmission Date: 20120403
  Serious: Yes (Hospitalization)
  Sender: FDA-Public Use
  Company Number: AUR-APL-2011-06270

PATIENT
  Age: 17 Year
  Sex: Female
  Weight: 51.8 kg

DRUGS (1)
  1. FLUOXETINE [Suspect]
     Indication: DEPRESSION
     Dosage: (20 MG),ORAL
     Route: 048
     Dates: start: 20111001, end: 20111027

REACTIONS (5)
  - AGITATION [None]
  - CONDITION AGGRAVATED [None]
  - SUICIDAL BEHAVIOUR [None]
  - SUICIDAL IDEATION [None]
  - SELF-INJURIOUS IDEATION [None]
